FAERS Safety Report 22857260 (Version 2)
Quarter: 2024Q1

REPORT INFORMATION
  Report Type: Spontaneous
  Country: US (occurrence: US)
  Receive Date: 20230823
  Receipt Date: 20240219
  Transmission Date: 20240410
  Serious: No
  Sender: FDA-Public Use
  Company Number: US-Stemline Therapeutics, Inc.-2023ST000990

PATIENT
  Age: 71 Year
  Sex: Female

DRUGS (1)
  1. ORSERDU [Suspect]
     Active Substance: ELACESTRANT
     Indication: Product used for unknown indication
     Route: 048
     Dates: start: 20230512

REACTIONS (14)
  - Hepatic pain [Unknown]
  - Eye disorder [Unknown]
  - Hepatic enzyme increased [Unknown]
  - Neck pain [Unknown]
  - Pain [Unknown]
  - Asthenia [Unknown]
  - Haemoglobin decreased [Unknown]
  - Cough [Unknown]
  - Arthralgia [Unknown]
  - Dyspepsia [Not Recovered/Not Resolved]
  - Flushing [Unknown]
  - Hot flush [Recovering/Resolving]
  - Back pain [Unknown]
  - Fatigue [Unknown]
